FAERS Safety Report 8918452 (Version 1)
Quarter: 2012Q4

REPORT INFORMATION
  Report Type: 
  Country: US (occurrence: US)
  Receive Date: 20121120
  Receipt Date: 20121120
  Transmission Date: 20130627
  Serious: No
  Sender: FDA-Public Use
  Company Number: US-ASTRAZENECA-2012SE27135

PATIENT
  Age: 55 Year
  Sex: Female
  Weight: 83.5 kg

DRUGS (10)
  1. NEXIUM [Suspect]
     Indication: GASTROOESOPHAGEAL REFLUX DISEASE
     Route: 048
     Dates: start: 2007
  2. FOLIC ACID [Concomitant]
  3. PROZAC [Concomitant]
     Indication: DEPRESSION
  4. XANAX [Concomitant]
     Indication: DEPRESSION
  5. SUMATRIPTAN SUCCINATE [Concomitant]
     Indication: MIGRAINE
  6. CALCIUM [Concomitant]
  7. VITAMIN D [Concomitant]
  8. IRON [Concomitant]
  9. VITAMIN C [Concomitant]
  10. ASPIRIN [Concomitant]
     Indication: CEREBROVASCULAR ACCIDENT

REACTIONS (2)
  - Gastrooesophageal reflux disease [Unknown]
  - Intentional drug misuse [Unknown]
